FAERS Safety Report 4345818-9 (Version None)
Quarter: 2004Q2

REPORT INFORMATION
  Report Type: 
  Country: None (occurrence: None)
  Receive Date: 20040424
  Receipt Date: 20040416
  Transmission Date: 20050107
  Serious: Yes (Hospitalization)
  Sender: FDA-Public Use
  Company Number: US-MERCK-0404USA01667

PATIENT
  Age: 52 Year
  Sex: Female

DRUGS (1)
  1. SINGULAIR [Suspect]
     Indication: IDIOPATHIC URTICARIA
     Route: 048
     Dates: start: 20040101, end: 20040101

REACTIONS (2)
  - JUGULAR VEIN THROMBOSIS [None]
  - LOCAL SWELLING [None]
